FAERS Safety Report 16473028 (Version 1)
Quarter: 2019Q2

REPORT INFORMATION
  Report Type: Spontaneous
  Country: US (occurrence: US)
  Receive Date: 20190625
  Receipt Date: 20190625
  Transmission Date: 20190711
  Serious: No
  Sender: FDA-Public Use
  Company Number: US-GLAXOSMITHKLINE-US2019112984

PATIENT
  Sex: Female

DRUGS (1)
  1. ARNUITY ELLIPTA [Suspect]
     Active Substance: FLUTICASONE FUROATE
     Indication: COUGH
     Dosage: 1 PUFF(S), 1D
     Route: 055
     Dates: start: 201903

REACTIONS (2)
  - Choking sensation [Recovered/Resolved]
  - Cough [Recovered/Resolved]
